FAERS Safety Report 4981117-X (Version None)
Quarter: 2006Q2

REPORT INFORMATION
  Report Type: 
  Country: None (occurrence: None)
  Receive Date: 20060421
  Receipt Date: 20060411
  Transmission Date: 20061013
  Serious: Yes (Other)
  Sender: FDA-Public Use
  Company Number: 2006BI005460

PATIENT
  Sex: Female

DRUGS (2)
  1. AVONEX [Suspect]
     Indication: MULTIPLE SCLEROSIS
     Dates: start: 20010427
  2. AVONEX [Suspect]
     Indication: MULTIPLE SCLEROSIS

REACTIONS (1)
  - CARDIAC DISORDER [None]
